FAERS Safety Report 24435169 (Version 2)
Quarter: 2025Q4

REPORT INFORMATION
  Report Type: Report from Study
  Country: EU (occurrence: EU)
  Receive Date: 20241015
  Receipt Date: 20251014
  Transmission Date: 20260118
  Serious: Yes (Hospitalization)
  Sender: ABBVIE
  Company Number: EU-ABBVIE-5957851

PATIENT
  Age: 69 Year
  Sex: Male

DRUGS (8)
  1. RINVOQ [Suspect]
     Active Substance: UPADACITINIB
     Indication: Rheumatoid arthritis
     Dosage: FOA: PROLONGED-RELEASE TABLET
     Route: 048
     Dates: start: 202005, end: 202009
  2. METHOTREXATE [Concomitant]
     Active Substance: METHOTREXATE
     Indication: Rheumatoid arthritis
     Dosage: START DATE TEXT: BEFORE 15 APR 2016 ?STOP DATE TEXT: BETWEEN 19 JUL 2016 AND 06 OCT 2016
  3. METHOTREXATE [Concomitant]
     Active Substance: METHOTREXATE
     Indication: Rheumatoid arthritis
     Dosage: START DATE TEXT: BETWEEN 19 JUL 2016 AND 06 OCT 2016 ?STOP DATE TEXT: BETWEEN 18 OCT 2017 AND 13 ...
  4. METHOTREXATE [Concomitant]
     Active Substance: METHOTREXATE
     Indication: Rheumatoid arthritis
     Dosage: START DATE TEXT: BETWEEN 18 OCT 2017 AND 13 MAR 2018 ?STOP DATE TEXT: BETWEEN 05 OCT 2018 AND 22 ...
  5. METHOTREXATE [Concomitant]
     Active Substance: METHOTREXATE
     Indication: Rheumatoid arthritis
     Dosage: START DATE TEXT: BETWEEN 05 OCT 2018 AND 22 MAR 2019 ?STOP DATE TEXT: BETWEEN 04 SEP 2020 AND16 A...
  6. METHOTREXATE [Concomitant]
     Active Substance: METHOTREXATE
     Indication: Rheumatoid arthritis
     Dosage: START DATE TEXT: BETWEEN 04 SEP 2020 AND 16 APR 2021 ?STOP DATE TEXT: BETWEEN 05 SEP 2022 AND 30 ...
  7. XELJANZ [Concomitant]
     Active Substance: TOFACITINIB CITRATE
     Indication: Product used for unknown indication
     Dosage: FORM STRENGTH: 5 MG
     Dates: start: 202101
  8. XELJANZ [Concomitant]
     Active Substance: TOFACITINIB CITRATE
     Indication: Product used for unknown indication
     Dosage: FORM STRENGTH: 10 MG
     Dates: end: 202201

REACTIONS (8)
  - Osteitis deformans [Unknown]
  - Tendon rupture [Unknown]
  - Osteopenia [Unknown]
  - Spermatocele [Unknown]
  - Arthralgia [Recovered/Resolved]
  - Testicular pain [Unknown]
  - Urinary tract infection [Unknown]
  - Osteoarthritis [Unknown]

NARRATIVE: CASE EVENT DATE: 20231121
